FAERS Safety Report 7587223-8 (Version None)
Quarter: 2011Q3

REPORT INFORMATION
  Report Type: 
  Country: None (occurrence: None)
  Receive Date: 20110701
  Receipt Date: 20110629
  Transmission Date: 20111222
  Serious: Yes (Death, Hospitalization)
  Sender: FDA-Public Use
  Company Number: CA-ABBOTT-11P-028-0728923-00

PATIENT
  Sex: Male
  Weight: 61.29 kg

DRUGS (1)
  1. LUPRON DEPOT [Suspect]
     Indication: PROSTATE CANCER
     Dates: start: 19970103, end: 20110214

REACTIONS (2)
  - MYOCARDIAL INFARCTION [None]
  - RESPIRATORY DISORDER [None]
